FAERS Safety Report 8502380-4 (Version None)
Quarter: 2012Q3

REPORT INFORMATION
  Report Type: 
  Country: None (occurrence: None)
  Receive Date: 20120702
  Receipt Date: 20120626
  Transmission Date: 20120928
  Serious: Yes (Hospitalization, Other)
  Sender: FDA-Public Use
  Company Number: 2011MA009020

PATIENT
  Age: 51 Year
  Sex: Female

DRUGS (3)
  1. PROZAC [Concomitant]
  2. LORAZEPAM [Suspect]
     Indication: OBSESSIVE-COMPULSIVE DISORDER
     Dosage: 1.5 MG;QD;PO
     Route: 048
     Dates: start: 20100801
  3. SERTRALINA [Concomitant]

REACTIONS (5)
  - SUICIDAL IDEATION [None]
  - PARADOXICAL DRUG REACTION [None]
  - CONDITION AGGRAVATED [None]
  - AGITATION [None]
  - INTENTIONAL SELF-INJURY [None]
